FAERS Safety Report 9238506 (Version 1)
Quarter: 2013Q2

REPORT INFORMATION
  Report Type: Spontaneous
  Country: US (occurrence: US)
  Receive Date: 20130418
  Receipt Date: 20130418
  Transmission Date: 20140414
  Serious: Yes (Other)
  Sender: FDA-Public Use
  Company Number: US-ASTELLAS-2013US004039

PATIENT
  Age: 89 Year
  Sex: Female

DRUGS (2)
  1. MYRBETRIQ [Suspect]
     Indication: PRODUCT USED FOR UNKNOWN INDICATION
     Dosage: 25 MG, UNKNOWN/D
     Route: 048
     Dates: start: 20130322, end: 2013
  2. MYRBETRIQ [Suspect]
     Dosage: UNK
     Route: 048
     Dates: start: 201302, end: 2013

REACTIONS (7)
  - Incorrect dose administered [Unknown]
  - Drug ineffective [Unknown]
  - Treatment noncompliance [Unknown]
  - Urinary incontinence [Recovering/Resolving]
  - Pollakiuria [Recovering/Resolving]
  - Micturition urgency [Recovering/Resolving]
  - Bladder dilatation [Recovering/Resolving]
